FAERS Safety Report 25882490 (Version 1)
Quarter: 2025Q4

REPORT INFORMATION
  Report Type: Spontaneous
  Country: GB (occurrence: GB)
  Receive Date: 20251006
  Receipt Date: 20251006
  Transmission Date: 20260118
  Serious: Yes (Other)
  Sender: SANDOZ
  Company Number: GB-MHRA-TPP51185340C6220007YC1758558219700

PATIENT
  Age: 53 Year
  Sex: Female
  Weight: 89 kg

DRUGS (22)
  1. AMOXICILLIN [Suspect]
     Active Substance: AMOXICILLIN
     Indication: Ill-defined disorder
     Dosage: 500 MG, Q8H
     Route: 065
     Dates: end: 20250915
  2. ASPIRIN [Concomitant]
     Active Substance: ASPIRIN
     Indication: Ill-defined disorder
     Dosage: 1 DF, QD WITH FOOD
     Route: 065
     Dates: start: 20250527
  3. BUTYLSCOPOLAMINE BROMIDE [Concomitant]
     Active Substance: BUTYLSCOPOLAMINE BROMIDE
     Indication: Ill-defined disorder
     Dosage: 1 DF, TID WHEN REQUIRED
     Route: 065
     Dates: start: 20250711, end: 20250712
  4. CLARITHROMYCIN [Concomitant]
     Active Substance: CLARITHROMYCIN
     Indication: Ill-defined disorder
     Dosage: 1 DF, Q12H FOR 5 DAYS
     Route: 065
     Dates: start: 20250908, end: 20250913
  5. CROTAMITON [Concomitant]
     Active Substance: CROTAMITON
     Indication: Ill-defined disorder
     Dosage: UNK USE AS DIRECTED
     Route: 065
     Dates: start: 20250901
  6. CYCLIZINE [Concomitant]
     Active Substance: CYCLIZINE
     Indication: Ill-defined disorder
     Dosage: 1 DF, TID WHEN REQUIRED
     Route: 065
     Dates: start: 20250811
  7. ERYTHROMYCIN [Concomitant]
     Active Substance: ERYTHROMYCIN
     Indication: Ill-defined disorder
     Dosage: 1 DF, QID
     Route: 065
     Dates: start: 20250922
  8. ESTRADIOL [Concomitant]
     Active Substance: ESTRADIOL
     Indication: Ill-defined disorder
     Dosage: APPLY ONCE DAILY(ADD IN THE NUMBER OF PUMPS)  ...
     Route: 065
     Dates: start: 20250904
  9. FEXOFENADINE [Concomitant]
     Active Substance: FEXOFENADINE HYDROCHLORIDE
     Indication: Ill-defined disorder
     Dosage: 1 DF, QD WHEN REQUIRED
     Route: 065
     Dates: start: 20240910
  10. FOLIC ACID [Concomitant]
     Active Substance: FOLIC ACID
     Indication: Ill-defined disorder
     Dosage: 1 DF, QD
     Route: 065
     Dates: start: 20240910
  11. GABAPENTIN [Concomitant]
     Active Substance: GABAPENTIN
     Indication: Ill-defined disorder
     Dosage: 1 DF, TID
     Route: 065
     Dates: start: 20250219
  12. PROGESTERONE [Concomitant]
     Active Substance: PROGESTERONE
     Indication: Ill-defined disorder
     Dosage: 1 DF TAKEN AT NIGHT
     Route: 065
     Dates: start: 20250904
  13. LANSOPRAZOLE [Concomitant]
     Active Substance: LANSOPRAZOLE
     Indication: Ill-defined disorder
     Dosage: 1 DF, QD
     Route: 065
     Dates: start: 20240910
  14. LINACLOTIDE [Concomitant]
     Active Substance: LINACLOTIDE
     Indication: Ill-defined disorder
     Dosage: 1 DF, QD
     Route: 065
     Dates: start: 20240910
  15. LOPERAMIDE [Concomitant]
     Active Substance: LOPERAMIDE
     Indication: Ill-defined disorder
     Dosage: 1 DF, TID
     Route: 065
     Dates: start: 20240910
  16. ONDANSETRON [Concomitant]
     Active Substance: ONDANSETRON
     Indication: Ill-defined disorder
     Dosage: 1 DF, TID WHEN REQUIRED F...
     Route: 065
     Dates: start: 20250609
  17. OXYCODONE HYDROCHLORIDE [Concomitant]
     Active Substance: OXYCODONE HYDROCHLORIDE
     Indication: Ill-defined disorder
     Dosage: 1 DF, Q12H
     Route: 065
     Dates: start: 20250313
  18. OXYCODONE HYDROCHLORIDE [Concomitant]
     Active Substance: OXYCODONE HYDROCHLORIDE
     Indication: Ill-defined disorder
     Dosage: 15MG EVERY 3 HOURS PRN. MAX TO BE TAKEN FOUR TI...
     Route: 065
     Dates: start: 20250311
  19. PRAMIPEXOLE [Concomitant]
     Active Substance: PRAMIPEXOLE
     Indication: Ill-defined disorder
     Dosage: 1 DF, TID EACH NIGHT
     Route: 065
     Dates: start: 20240910
  20. SERTRALINE [Concomitant]
     Active Substance: SERTRALINE HYDROCHLORIDE
     Indication: Ill-defined disorder
     Dosage: 1 DF, BID
     Route: 065
     Dates: start: 20240910
  21. SIMVASTATIN [Concomitant]
     Active Substance: SIMVASTATIN
     Indication: Ill-defined disorder
     Dosage: 1 DF, QD AT NIGHT
     Route: 065
     Dates: start: 20250527
  22. ZOPICLONE [Concomitant]
     Active Substance: ZOPICLONE
     Indication: Ill-defined disorder
     Dosage: TAKE ONE OR TWO AT NIGHT IF REQUIRED
     Route: 065
     Dates: start: 20250219

REACTIONS (2)
  - Lip swelling [Recovering/Resolving]
  - Mouth ulceration [Recovering/Resolving]

NARRATIVE: CASE EVENT DATE: 20250908
